FAERS Safety Report 10522044 (Version 1)
Quarter: 2014Q4

REPORT INFORMATION
  Report Type: Spontaneous
  Country: US (occurrence: None)
  Receive Date: 20141014
  Receipt Date: 20141014
  Transmission Date: 20150528
  Serious: Yes (Hospitalization)
  Sender: FDA-Public Use
  Company Number: None

PATIENT
  Age: 64 Year
  Sex: Male
  Weight: 103.2 kg

DRUGS (1)
  1. DICLOFENAC [Suspect]
     Active Substance: DICLOFENAC
     Indication: PAIN
     Route: 048
     Dates: start: 20061002, end: 20131229

REACTIONS (3)
  - Haemorrhagic erosive gastritis [None]
  - Haemoglobin decreased [None]
  - Duodenal ulcer [None]

NARRATIVE: CASE EVENT DATE: 20140109
